FAERS Safety Report 9699910 (Version 2)
Quarter: 2013Q4

REPORT INFORMATION
  Report Type: Spontaneous
  Country: HU (occurrence: HU)
  Receive Date: 20131121
  Receipt Date: 20131129
  Transmission Date: 20140711
  Serious: Yes (Hospitalization)
  Sender: FDA-Public Use
  Company Number: CHNY2013HU002567

PATIENT
  Age: 60 Year
  Sex: Female

DRUGS (3)
  1. DICLOFENAC [Suspect]
     Indication: OROPHARYNGEAL PAIN
     Dosage: 1 DF, UNK
     Route: 048
     Dates: start: 2008
  2. AMLODIPINE [Concomitant]
     Indication: HYPERTENSION
  3. RILMENIDINE [Concomitant]

REACTIONS (7)
  - Still^s disease adult onset [Recovering/Resolving]
  - Rash [Recovering/Resolving]
  - Arthralgia [Recovering/Resolving]
  - Drug hypersensitivity [Recovering/Resolving]
  - Pharyngitis [Recovering/Resolving]
  - Body temperature increased [Recovering/Resolving]
  - Thrombocytopenia [Recovering/Resolving]
